FAERS Safety Report 22337160 (Version 1)
Quarter: 2023Q2

REPORT INFORMATION
  Report Type: Spontaneous
  Country: US (occurrence: US)
  Receive Date: 20230518
  Receipt Date: 20230518
  Transmission Date: 20230722
  Serious: No
  Sender: FDA-Public Use
  Company Number: US-STERISCIENCE B.V.-2023-ST-000206

PATIENT
  Age: 27 Year
  Sex: Female
  Weight: 70 kg

DRUGS (8)
  1. ONDANSETRON [Suspect]
     Active Substance: ONDANSETRON
     Indication: Product used for unknown indication
     Dosage: 4 MILLIGRAM
     Route: 065
  2. BUPIVACAINE [Suspect]
     Active Substance: BUPIVACAINE
     Indication: Induction of anaesthesia
     Dosage: 12 MILLIGRAM
     Route: 037
  3. LACTATED RINGERS SOLUTION [Suspect]
     Active Substance: CALCIUM CHLORIDE\POTASSIUM CHLORIDE\SODIUM CHLORIDE\SODIUM LACTATE
     Indication: Fluid replacement
     Dosage: 500 MILLILITER
     Route: 042
  4. CITRIC ACID, 1-STEARYL ESTER\SODIUM CITRATE [Suspect]
     Active Substance: CITRIC ACID, 1-STEARYL ESTER\SODIUM CITRATE
     Indication: Product used for unknown indication
     Dosage: 30 MILLILITER
     Route: 048
  5. DEXAMETHASONE [Suspect]
     Active Substance: DEXAMETHASONE
     Indication: Product used for unknown indication
     Dosage: 10 MILLIGRAM
     Route: 065
  6. METOCLOPRAMIDE [Suspect]
     Active Substance: METOCLOPRAMIDE
     Indication: Product used for unknown indication
     Dosage: 10 MILLIGRAM
     Route: 042
  7. MORPHINE [Suspect]
     Active Substance: MORPHINE
     Indication: Analgesic intervention supportive therapy
     Dosage: 0.2 MILLIGRAM
     Route: 037
  8. PHENYLEPHRINE [Suspect]
     Active Substance: PHENYLEPHRINE HYDROCHLORIDE
     Indication: Product used for unknown indication
     Dosage: 20MCG/MINUTE, INTRAVENOUS INFUSION
     Route: 042

REACTIONS (1)
  - Maternal exposure during delivery [Unknown]
